FAERS Safety Report 17555817 (Version 3)
Quarter: 2020Q2

REPORT INFORMATION
  Report Type: Report from Study
  Country: US (occurrence: US)
  Receive Date: 20200318
  Receipt Date: 20200514
  Transmission Date: 20200713
  Serious: Yes (Other)
  Sender: FDA-Public Use
  Company Number: US-SAGE-2020SAGE000019

PATIENT
  Age: 16 Year
  Sex: Female
  Weight: 47.9 kg

DRUGS (6)
  1. BREXANOLONE. [Suspect]
     Active Substance: BREXANOLONE
     Dosage: 30 MCG/KG/HOUR
     Route: 042
     Dates: start: 20200304, end: 20200304
  2. BREXANOLONE. [Suspect]
     Active Substance: BREXANOLONE
     Dosage: 60 MCG/KG/HOUR
     Route: 042
     Dates: start: 20200302, end: 20200303
  3. BREXANOLONE. [Suspect]
     Active Substance: BREXANOLONE
     Indication: PERINATAL DEPRESSION
     Dosage: 30 MCG/KG/HOUR
     Route: 042
     Dates: start: 20200302, end: 20200302
  4. DEPO-PROVERA [Concomitant]
     Active Substance: MEDROXYPROGESTERONE ACETATE
     Indication: PRODUCT USED FOR UNKNOWN INDICATION
     Dosage: 150 MG, Q3M
     Route: 030
     Dates: start: 20200115
  5. BREXANOLONE. [Suspect]
     Active Substance: BREXANOLONE
     Dosage: 60 MCG/KG/HOUR
     Route: 042
     Dates: start: 20200304, end: 20200304
  6. BREXANOLONE. [Suspect]
     Active Substance: BREXANOLONE
     Dosage: 90 MCG/KG/HOUR
     Route: 042
     Dates: start: 20200303, end: 20200303

REACTIONS (2)
  - Dizziness [Recovered/Resolved]
  - Loss of consciousness [Recovered/Resolved]

NARRATIVE: CASE EVENT DATE: 20200303
